FAERS Safety Report 11095213 (Version 1)
Quarter: 2015Q2

REPORT INFORMATION
  Report Type: Spontaneous
  Country: US (occurrence: US)
  Receive Date: 20150506
  Receipt Date: 20150506
  Transmission Date: 20150821
  Serious: No
  Sender: FDA-Public Use
  Company Number: US-SA-2014SA116847

PATIENT
  Age: 71 Year
  Sex: Female

DRUGS (1)
  1. APIDRA [Suspect]
     Active Substance: INSULIN GLULISINE
     Indication: DIABETES MELLITUS
     Dosage: 5 UNITS BEFORE LUNCH AND 10 UNITS BEFORE DINNER
     Route: 065

REACTIONS (2)
  - Blood glucose increased [Unknown]
  - Liquid product physical issue [Unknown]
